FAERS Safety Report 7378942-7 (Version None)
Quarter: 2011Q1

REPORT INFORMATION
  Report Type: 
  Country: None (occurrence: None)
  Receive Date: 20110328
  Receipt Date: 20110324
  Transmission Date: 20110831
  Serious: Yes (Death, Other)
  Sender: FDA-Public Use
  Company Number: PHHY2010CA88361

PATIENT

DRUGS (11)
  1. RISPERIDONE [Suspect]
     Indication: PSYCHOTIC DISORDER
     Dosage: 5 MG, UNK
  2. DIPHENHYDRAMINE HCL [Suspect]
     Dosage: 25 MG
  3. OLANZAPINE [Suspect]
     Indication: PSYCHOTIC DISORDER
     Dosage: 10 MG, UNK
  4. NORTRIPTYLINE [Suspect]
     Indication: MAJOR DEPRESSION
  5. RISPERIDONE [Suspect]
     Dosage: 1 MG, BID
  6. RISPERIDONE [Suspect]
     Dosage: 3 MG, QD (1 MG IN MORNING AND 2 MG IN NIGHT)
  7. RISPERIDONE [Suspect]
     Dosage: 2 MG, UNK
  8. LOXAPINE [Suspect]
     Dosage: 25 MG
  9. NORTRIPTYLINE [Suspect]
     Indication: PSYCHOTIC DISORDER
     Dosage: 100 MG, UNK
  10. VENLAFAXINE [Suspect]
     Indication: DEPRESSION
     Dosage: 225 MG, UNK
  11. OLANZAPINE [Suspect]
     Dosage: 5 MG, UNK

REACTIONS (11)
  - WEIGHT INCREASED [None]
  - RESPIRATORY ARREST [None]
  - MYDRIASIS [None]
  - OVERDOSE [None]
  - RESPIRATORY RATE DECREASED [None]
  - PULSE ABSENT [None]
  - HYPOTENSION [None]
  - HYPERPROLACTINAEMIA [None]
  - AMENORRHOEA [None]
  - LOSS OF CONSCIOUSNESS [None]
  - PULMONARY EMBOLISM [None]
